FAERS Safety Report 8484778-6 (Version None)
Quarter: 2012Q3

REPORT INFORMATION
  Report Type: 
  Country: None (occurrence: None)
  Receive Date: 20120703
  Receipt Date: 20120621
  Transmission Date: 20120928
  Serious: Yes (Hospitalization, Other)
  Sender: FDA-Public Use
  Company Number: US-JNJFOC-20120106590

PATIENT
  Sex: Female
  Weight: 80.29 kg

DRUGS (14)
  1. SULFADIAZINE [Concomitant]
     Route: 065
  2. CLARITIN [Concomitant]
     Route: 065
  3. MULTI-VITAMINS [Concomitant]
     Route: 065
  4. PREDNISONE [Concomitant]
     Route: 065
  5. IMODIUM [Concomitant]
     Dosage: 2
     Route: 065
  6. REMICADE [Suspect]
     Indication: COLITIS ULCERATIVE
     Route: 042
  7. ALL OTHER THERAPEUTIC AGENTS [Concomitant]
     Route: 065
  8. SYNTHROID [Concomitant]
     Route: 065
  9. COUMADIN [Concomitant]
     Route: 065
  10. IRON [Concomitant]
     Route: 048
  11. PROCRIT [Concomitant]
     Route: 065
  12. PROTONIX [Concomitant]
     Route: 065
  13. NIFEREX (IRON POLYSACCHARIDE) [Concomitant]
     Route: 065
  14. LOVASTATIN [Concomitant]
     Route: 065

REACTIONS (8)
  - WEIGHT DECREASED [None]
  - FALL [None]
  - ATRIAL FIBRILLATION [None]
  - TACHYCARDIA [None]
  - ANAEMIA [None]
  - NO THERAPEUTIC RESPONSE [None]
  - URINARY INCONTINENCE [None]
  - DEPRESSED MOOD [None]
